FAERS Safety Report 14861977 (Version 17)
Quarter: 2025Q2

REPORT INFORMATION
  Report Type: Report from Study
  Country: CA (occurrence: CA)
  Receive Date: 20180508
  Receipt Date: 20250429
  Transmission Date: 20250716
  Serious: Yes (Hospitalization, Other)
  Sender: TAKEDA
  Company Number: CA-TAKEDA-2017TUS022266

PATIENT
  Sex: Female

DRUGS (30)
  1. VEDOLIZUMAB [Suspect]
     Active Substance: VEDOLIZUMAB
     Indication: Crohn^s disease
  2. VEDOLIZUMAB [Suspect]
     Active Substance: VEDOLIZUMAB
  3. VEDOLIZUMAB [Suspect]
     Active Substance: VEDOLIZUMAB
  4. VEDOLIZUMAB [Suspect]
     Active Substance: VEDOLIZUMAB
     Dosage: 300 MILLIGRAM, Q4WEEKS
     Dates: start: 20190115
  5. VEDOLIZUMAB [Suspect]
     Active Substance: VEDOLIZUMAB
     Dosage: 300 MILLIGRAM, Q4WEEKS
  6. VEDOLIZUMAB [Suspect]
     Active Substance: VEDOLIZUMAB
     Dosage: 300 MILLIGRAM, Q4WEEKS
  7. VEDOLIZUMAB [Suspect]
     Active Substance: VEDOLIZUMAB
     Dosage: 300 MILLIGRAM, Q4WEEKS
  8. VEDOLIZUMAB [Suspect]
     Active Substance: VEDOLIZUMAB
     Dosage: 300 MILLIGRAM, Q4WEEKS
  9. VEDOLIZUMAB [Suspect]
     Active Substance: VEDOLIZUMAB
     Dosage: 300 MILLIGRAM, Q4WEEKS
  10. SOLIFENACIN [Concomitant]
     Active Substance: SOLIFENACIN
  11. IRBESARTAN [Concomitant]
     Active Substance: IRBESARTAN
  12. SYNTHROID [Concomitant]
     Active Substance: LEVOTHYROXINE SODIUM
  13. AMOXIL [Concomitant]
     Active Substance: AMOXICILLIN
  14. CHOLECALCIFEROL [Concomitant]
     Active Substance: CHOLECALCIFEROL
  15. ZOPICLONE [Concomitant]
     Active Substance: ZOPICLONE
  16. AMITRIPTYLINE [Concomitant]
     Active Substance: AMITRIPTYLINE
  17. Sandoz-Metoprolol [Concomitant]
  18. ATORVASTATIN [Concomitant]
     Active Substance: ATORVASTATIN
  19. JANUMET [Concomitant]
     Active Substance: METFORMIN HYDROCHLORIDE\SITAGLIPTIN PHOSPHATE
  20. ASPIRIN [Concomitant]
     Active Substance: ASPIRIN
  21. SODIUM BICARBONATE [Concomitant]
     Active Substance: SODIUM BICARBONATE
  22. IRON [Concomitant]
     Active Substance: IRON
  23. TERAZOSIN [Concomitant]
     Active Substance: TERAZOSIN HYDROCHLORIDE
  24. TERAZOSIN [Concomitant]
     Active Substance: TERAZOSIN HYDROCHLORIDE
  25. REPAGLINIDE [Concomitant]
     Active Substance: REPAGLINIDE
  26. PAROXETINE [Concomitant]
     Active Substance: PAROXETINE
  27. ROSUVASTATIN [Concomitant]
     Active Substance: ROSUVASTATIN
  28. BISOPROLOL [Concomitant]
     Active Substance: BISOPROLOL
  29. VITAMIN D [Concomitant]
     Active Substance: VITAMIN D NOS
  30. ARANESP [Concomitant]
     Active Substance: DARBEPOETIN ALFA

REACTIONS (16)
  - Bladder neoplasm [Unknown]
  - Kidney infection [Recovered/Resolved]
  - Post procedural fistula [Unknown]
  - Blood glucose abnormal [Recovered/Resolved]
  - Urinary tract infection [Recovered/Resolved]
  - Septic shock [Unknown]
  - Nervousness [Not Recovered/Not Resolved]
  - Hypoglycaemia [Recovering/Resolving]
  - Fall [Recovering/Resolving]
  - Contusion [Recovering/Resolving]
  - Pain [Recovering/Resolving]
  - Blood pressure systolic increased [Unknown]
  - Renal mass [Not Recovered/Not Resolved]
  - Cystitis [Not Recovered/Not Resolved]
  - Blood pressure increased [Unknown]
  - Headache [Unknown]
